FAERS Safety Report 5603453-6 (Version None)
Quarter: 2008Q1

REPORT INFORMATION
  Report Type: 
  Country: None (occurrence: None)
  Receive Date: 20080123
  Receipt Date: 20080108
  Transmission Date: 20080703
  Serious: Yes (Other)
  Sender: FDA-Public Use
  Company Number: 8029039

PATIENT
  Age: 32 Year
  Sex: Female

DRUGS (4)
  1. KEPPRA [Suspect]
     Indication: PARTIAL SEIZURES
     Dosage: 500 MG 2/D PO
     Route: 048
     Dates: start: 20040101
  2. TEGRETOL [Concomitant]
  3. SPECIAFOLDINE [Concomitant]
  4. CLONAZEPAM [Concomitant]

REACTIONS (3)
  - ABORTION SPONTANEOUS [None]
  - DRUG EXPOSURE DURING PREGNANCY [None]
  - PREGNANCY [None]
